FAERS Safety Report 16449476 (Version 2)
Quarter: 2019Q3

REPORT INFORMATION
  Report Type: Other
  Country: CA (occurrence: CA)
  Receive Date: 20190619
  Receipt Date: 20190730
  Transmission Date: 20191004
  Serious: Yes (Other)
  Sender: FDA-Public Use
  Company Number: CA-APOTEX-2019AP016419

PATIENT
  Age: 48 Year
  Sex: Female

DRUGS (4)
  1. CIPROFLOXACIN. [Suspect]
     Active Substance: CIPROFLOXACIN
     Indication: INFECTED FISTULA
     Dosage: 500 MG, BID
     Route: 048
  2. HUMIRA [Suspect]
     Active Substance: ADALIMUMAB
     Indication: CROHN^S DISEASE
     Dosage: 40 MG, Q.O.WK.
     Route: 058
  3. HUMIRA [Suspect]
     Active Substance: ADALIMUMAB
     Indication: CROHN^S DISEASE
     Dosage: 40 MG, Q.O.WK.
     Route: 058
  4. METRONIDAZOLE. [Suspect]
     Active Substance: METRONIDAZOLE
     Indication: INFECTED FISTULA
     Dosage: 500 MG, TID
     Route: 048

REACTIONS (11)
  - Device breakage [Not Recovered/Not Resolved]
  - Abdominal pain [Not Recovered/Not Resolved]
  - Gastric disorder [Not Recovered/Not Resolved]
  - Rectal tube insertion [Not Recovered/Not Resolved]
  - Device dislocation [Not Recovered/Not Resolved]
  - Fistula [Not Recovered/Not Resolved]
  - Infected fistula [Not Recovered/Not Resolved]
  - Catheter site irritation [Not Recovered/Not Resolved]
  - Abdominal mass [Not Recovered/Not Resolved]
  - Drug ineffective [Not Recovered/Not Resolved]
  - Medical device site pain [Not Recovered/Not Resolved]
